FAERS Safety Report 13348313 (Version 3)
Quarter: 2017Q2

REPORT INFORMATION
  Report Type: Spontaneous
  Country: JP (occurrence: JP)
  Receive Date: 20170319
  Receipt Date: 20170403
  Transmission Date: 20170830
  Serious: Yes (Death, Life-Threatening, Hospitalization)
  Sender: FDA-Public Use
  Company Number: PHJP2016JP022137

PATIENT
  Age: 19 Day
  Sex: Male

DRUGS (3)
  1. SANDOSTATIN [Suspect]
     Active Substance: OCTREOTIDE ACETATE
     Dosage: 100 UG, UNK
     Route: 058
     Dates: start: 20160801, end: 20160803
  2. SANDOSTATIN [Suspect]
     Active Substance: OCTREOTIDE ACETATE
     Dosage: 200 UG, UNK
     Route: 058
     Dates: start: 20160804, end: 20160810
  3. SANDOSTATIN [Suspect]
     Active Substance: OCTREOTIDE ACETATE
     Indication: CHYLOTHORAX
     Dosage: 50 UG, UNK
     Route: 058
     Dates: start: 20160728, end: 20160731

REACTIONS (4)
  - Sepsis [Fatal]
  - Alkalosis [Recovering/Resolving]
  - Infection [Fatal]
  - Product use in unapproved indication [Unknown]

NARRATIVE: CASE EVENT DATE: 20160728
